FAERS Safety Report 25375324 (Version 3)
Quarter: 2025Q2

REPORT INFORMATION
  Report Type: Report from Study
  Country: FR (occurrence: FR)
  Receive Date: 20250529
  Receipt Date: 20250607
  Transmission Date: 20250717
  Serious: Yes (Life-Threatening, Hospitalization)
  Sender: NOVARTIS
  Company Number: FR-002147023-NVSC2025FR082810

PATIENT
  Sex: Female
  Weight: 63 kg

DRUGS (1)
  1. KISQALI [Suspect]
     Active Substance: RIBOCICLIB SUCCINATE
     Indication: Hormone receptor positive HER2 negative breast cancer
     Dosage: 600 MG, QD
     Route: 048
     Dates: start: 20241227, end: 20250405

REACTIONS (2)
  - Hepatitis toxic [Not Recovered/Not Resolved]
  - Hepatic cytolysis [Unknown]

NARRATIVE: CASE EVENT DATE: 20250405
